FAERS Safety Report 25570173 (Version 1)
Quarter: 2025Q3

REPORT INFORMATION
  Report Type: Spontaneous
  Country: US (occurrence: US)
  Receive Date: 20250717
  Receipt Date: 20250717
  Transmission Date: 20251021
  Serious: No
  Sender: BAUSCH AND LOMB
  Company Number: US-BAUSCHBL-2025BNL012480

PATIENT
  Sex: Male

DRUGS (1)
  1. XIIDRA [Suspect]
     Active Substance: LIFITEGRAST
     Indication: Product used for unknown indication
     Route: 065
     Dates: start: 20250714

REACTIONS (3)
  - Vision blurred [Recovering/Resolving]
  - Visual acuity reduced [Unknown]
  - Product use complaint [Unknown]

NARRATIVE: CASE EVENT DATE: 20250701
